FAERS Safety Report 16767426 (Version 1)
Quarter: 2019Q3

REPORT INFORMATION
  Report Type: Spontaneous
  Country: DE (occurrence: DE)
  Receive Date: 20190903
  Receipt Date: 20190903
  Transmission Date: 20191005
  Serious: Yes (Hospitalization)
  Sender: FDA-Public Use
  Company Number: DE-ENDO PHARMACEUTICALS INC-2019-106769

PATIENT
  Age: 34 Year
  Sex: Male

DRUGS (3)
  1. AVEED [Suspect]
     Active Substance: TESTOSTERONE UNDECANOATE
     Dosage: UNK UNKNOWN, UNKNOWN; SECOND INJECTION
     Route: 058
     Dates: start: 2019
  2. AVEED [Suspect]
     Active Substance: TESTOSTERONE UNDECANOATE
     Indication: ANDROGEN DEFICIENCY
     Dosage: UNK UNKNOWN, UNKNOWN
     Route: 058
     Dates: start: 2019
  3. AVEED [Suspect]
     Active Substance: TESTOSTERONE UNDECANOATE
     Dosage: UNK UNKNOWN, UNKNOWN; THIRD INJECTION
     Route: 058
     Dates: start: 20190723

REACTIONS (8)
  - Feeling cold [Unknown]
  - Fatigue [Unknown]
  - Cough [Unknown]
  - Pyrexia [Recovering/Resolving]
  - Feeling hot [Unknown]
  - Influenza like illness [Unknown]
  - Viral infection [Recovering/Resolving]
  - Asthenia [Recovering/Resolving]

NARRATIVE: CASE EVENT DATE: 2019
